FAERS Safety Report 8374174-4 (Version None)
Quarter: 2012Q2

REPORT INFORMATION
  Report Type: 
  Country: None (occurrence: None)
  Receive Date: 20120521
  Receipt Date: 20120516
  Transmission Date: 20120825
  Serious: Yes (Hospitalization)
  Sender: FDA-Public Use
  Company Number: IE-GLAXOSMITHKLINE-B0800306A

PATIENT
  Sex: Female
  Weight: 84 kg

DRUGS (14)
  1. ZOFRAN [Concomitant]
     Indication: NAUSEA
     Dates: start: 20120417
  2. DOCETAXEL [Suspect]
     Indication: BREAST CANCER
     Dosage: 145MG CYCLIC
     Route: 042
     Dates: start: 20120327
  3. NEULASTA [Concomitant]
     Indication: CHEMOTHERAPY
     Route: 058
     Dates: start: 20120328
  4. CARBOPLATIN [Suspect]
     Indication: BREAST CANCER
     Dosage: 820MG CYCLIC
     Route: 042
     Dates: start: 20120327
  5. LOMOTIL [Concomitant]
     Indication: DIARRHOEA
     Route: 048
     Dates: start: 20120503
  6. OMEPRAZOLE [Concomitant]
     Indication: DYSPEPSIA
     Route: 048
     Dates: start: 20110101
  7. MOTILIUM [Concomitant]
     Indication: NAUSEA
     Route: 048
     Dates: start: 20120327
  8. ISTIN [Concomitant]
     Indication: HYPERTENSION
     Route: 048
     Dates: start: 20080101
  9. DIOVAN HCT [Concomitant]
     Indication: HYPERTENSION
     Route: 048
     Dates: start: 20080101
  10. LAPATINIB [Suspect]
     Indication: BREAST CANCER
     Dosage: 1000MG PER DAY
     Route: 048
     Dates: start: 20120327
  11. HERCEPTIN [Suspect]
     Indication: BREAST CANCER
     Dosage: 546MG EVERY 3 WEEKS
     Route: 042
     Dates: start: 20120327
  12. VALOID [Concomitant]
     Indication: NAUSEA
     Route: 048
     Dates: start: 20120329
  13. TRAMADOL HYDROCHLORIDE [Concomitant]
     Indication: PAIN
     Dosage: 150MG AS REQUIRED
     Route: 048
     Dates: start: 20120327
  14. DEXAMETHASONE [Concomitant]
     Indication: CHEMOTHERAPY
     Route: 048
     Dates: start: 20120326

REACTIONS (2)
  - DEHYDRATION [None]
  - RENAL FAILURE ACUTE [None]
